FAERS Safety Report 9037211 (Version 3)
Quarter: 2013Q1

REPORT INFORMATION
  Report Type: Spontaneous
  Country: US (occurrence: None)
  Receive Date: 20121207
  Receipt Date: 20130228
  Transmission Date: 20140127
  Serious: Yes (Death, Hospitalization)
  Sender: FDA-Public Use
  Company Number: 2012PROUSA02310

PATIENT
  Age: 80 Year
  Sex: Male
  Weight: 83 kg

DRUGS (9)
  1. PROVENGE [Suspect]
     Indication: PROSTATE CANCER METASTATIC
     Dosage: 250ML, SINGLE, INTRAVENOUS
     Route: 042
     Dates: start: 20121101, end: 20121101
  2. FLOMAX (TAMSULOSIN HYDROCHLORIDE) [Concomitant]
  3. CALCIUM CARBONATE (CALCIUM CARBONATE) [Concomitant]
  4. LASIX (FUROSEMIDE) [Concomitant]
  5. MULTIVITAMIN (VITAMINS NOS) [Concomitant]
  6. FLAXSEED OIL (FLAXSEED OIL) [Concomitant]
  7. LISINOPRIL (LISINOPRIL) [Concomitant]
  8. LIPITOR (ATORVASTATIN CALCIUM) [Concomitant]
  9. ASPIRIN (ACETYLSALICYLIC ACID) [Concomitant]

REACTIONS (4)
  - Cardiac failure congestive [None]
  - Iron deficiency anaemia [None]
  - Fatigue [None]
  - Weight decreased [None]
